FAERS Safety Report 8596929-3 (Version None)
Quarter: 2012Q3

REPORT INFORMATION
  Report Type: 
  Country: None (occurrence: None)
  Receive Date: 20120815
  Receipt Date: 20120803
  Transmission Date: 20120928
  Serious: Yes (Hospitalization)
  Sender: FDA-Public Use
  Company Number: DE-AMGEN-UK292402

PATIENT
  Age: 77 Year
  Sex: Male

DRUGS (7)
  1. ALLOPURINOL [Concomitant]
     Dosage: 150 MG, QD
     Route: 048
     Dates: start: 20051102
  2. CINACALCET HYDROCHLORIDE [Suspect]
     Indication: HYPERPARATHYROIDISM SECONDARY
     Dosage: UNK UNK, QD
     Route: 048
     Dates: start: 20070326
  3. ASPIRIN [Concomitant]
     Dosage: 100 MG, QD
     Dates: start: 20061006
  4. RENAGEL [Concomitant]
     Dosage: 800 MG, TID
     Route: 048
     Dates: start: 20060301
  5. MAGNESIUM CARBONATE [Concomitant]
     Dosage: UNK UNK, TID
     Route: 048
     Dates: start: 20071029
  6. BUDESONIDE [Concomitant]
     Dosage: .2 MG, PRN
     Route: 055
     Dates: start: 20080521
  7. CALCIUM ACETATE [Concomitant]
     Dosage: UNK UNK, TID
     Route: 048
     Dates: start: 20071029

REACTIONS (1)
  - TONGUE NEOPLASM MALIGNANT STAGE UNSPECIFIED [None]
